FAERS Safety Report 9567485 (Version 1)
Quarter: 2013Q3

REPORT INFORMATION
  Report Type: Spontaneous
  Country: US (occurrence: US)
  Receive Date: 20130930
  Receipt Date: 20130930
  Transmission Date: 20140515
  Serious: No
  Sender: FDA-Public Use
  Company Number: US-AMGEN-USASP2012074863

PATIENT
  Age: 28 Year
  Sex: Female

DRUGS (1)
  1. ENBREL [Suspect]
     Indication: RHEUMATOID ARTHRITIS
     Dosage: 50 MG, QWK
     Route: 058
     Dates: start: 201207

REACTIONS (6)
  - Abdominal discomfort [Unknown]
  - Myalgia [Unknown]
  - Headache [Unknown]
  - Vomiting [Unknown]
  - Oropharyngeal pain [Unknown]
  - Influenza [Unknown]
